FAERS Safety Report 9224329 (Version 1)
Quarter: 2013Q2

REPORT INFORMATION
  Report Type: Spontaneous
  Country: BR (occurrence: BR)
  Receive Date: 20130411
  Receipt Date: 20130411
  Transmission Date: 20140414
  Serious: Yes (Other)
  Sender: FDA-Public Use
  Company Number: PHHY2013BR034607

PATIENT
  Sex: Male

DRUGS (1)
  1. RASILEZ AMLO [Suspect]
     Dosage: UNK UKN, UNK
     Dates: end: 2012

REACTIONS (2)
  - Hypersensitivity [Unknown]
  - Dermatitis [Unknown]
